FAERS Safety Report 8211267-6 (Version None)
Quarter: 2012Q1

REPORT INFORMATION
  Report Type: 
  Country: None (occurrence: None)
  Receive Date: 20120229
  Receipt Date: 20111121
  Transmission Date: 20120608
  Serious: Yes (Other)
  Sender: FDA-Public Use
  Company Number: 337436

PATIENT
  Age: 79 Year
  Sex: Female
  Weight: 95.2 kg

DRUGS (12)
  1. NOVOLIN 70/30 [Suspect]
     Indication: TYPE 2 DIABETES MELLITUS
     Dosage: 63 UNITS QD, 54 UNITS IN THE MORNING AND 9 UNITS IN THE EVENING, SUBCUTANEOUS
     Route: 058
     Dates: start: 20061019
  2. PRILOSEC [Concomitant]
  3. SYNTHROID [Concomitant]
  4. FORTEO [Concomitant]
  5. FLONASE [Concomitant]
  6. NITROGLYCERIN [Concomitant]
  7. ASPIRIN [Concomitant]
  8. TOPROL-XL [Concomitant]
  9. CARAFATE [Concomitant]
  10. FISH OIL (FISH OIL) [Concomitant]
  11. ERGOCALCIFEROL [Concomitant]
  12. CALCIUM CARBONATE W/MAGNESIUM (CALCIUM CARBONATE, MAGNESIUM) [Concomitant]

REACTIONS (4)
  - BLOOD GLUCOSE INCREASED [None]
  - BLOOD GLUCOSE DECREASED [None]
  - BLOOD GLUCOSE FLUCTUATION [None]
  - HYPOGLYCAEMIC UNCONSCIOUSNESS [None]
